FAERS Safety Report 24034947 (Version 5)
Quarter: 2024Q3

REPORT INFORMATION
  Report Type: Report from Study
  Country: US (occurrence: US)
  Receive Date: 20240701
  Receipt Date: 20240814
  Transmission Date: 20241017
  Serious: Yes (Hospitalization)
  Sender: EISAI
  Company Number: US-Eisai-EC-2024-168077

PATIENT
  Age: 78 Year
  Sex: Male

DRUGS (2)
  1. LENVIMA [Suspect]
     Active Substance: LENVATINIB
     Indication: Hepatocellular carcinoma
     Route: 048
     Dates: start: 20240528, end: 20240623
  2. LENVIMA [Suspect]
     Active Substance: LENVATINIB
     Route: 048
     Dates: start: 20240719

REACTIONS (13)
  - Hypertension [Recovered/Resolved]
  - Bradycardia [Recovered/Resolved]
  - Decreased appetite [Recovered/Resolved]
  - Mood altered [Unknown]
  - Diarrhoea [Not Recovered/Not Resolved]
  - Blood sodium decreased [Unknown]
  - Blood potassium increased [Unknown]
  - Cough [Not Recovered/Not Resolved]
  - Peripheral swelling [Unknown]
  - Oedema peripheral [Recovered/Resolved]
  - Headache [Unknown]
  - Fatigue [Unknown]
  - Food aversion [Unknown]

NARRATIVE: CASE EVENT DATE: 20240101
